FAERS Safety Report 7058918-X (Version None)
Quarter: 2010Q4

REPORT INFORMATION
  Report Type: 
  Country: None (occurrence: None)
  Receive Date: 20101024
  Receipt Date: 20101011
  Transmission Date: 20110411
  Serious: Yes (Hospitalization)
  Sender: FDA-Public Use
  Company Number: US-ELI_LILLY_AND_COMPANY-US201009005508

PATIENT
  Sex: Female

DRUGS (7)
  1. FORTEO [Suspect]
     Indication: OSTEOPOROSIS
     Dosage: 20 UG, DAILY (1/D)
     Route: 058
     Dates: start: 20090101
  2. VERAPAMIL [Concomitant]
  3. LISINOPRIL [Concomitant]
  4. DIAZIDE [Concomitant]
  5. PRILOSEC [Concomitant]
  6. LOVASTATIN [Concomitant]
  7. MULTI-VITAMIN [Concomitant]

REACTIONS (1)
  - GAIT DISTURBANCE [None]
